FAERS Safety Report 7864712-X (Version None)
Quarter: 2011Q4

REPORT INFORMATION
  Report Type: 
  Country: None (occurrence: None)
  Receive Date: 20111028
  Receipt Date: 20111019
  Transmission Date: 20120403
  Serious: Yes (Hospitalization, Other)
  Sender: FDA-Public Use
  Company Number: GB-PFIZER INC-2011253288

PATIENT
  Age: 46 Year

DRUGS (4)
  1. PROPOFOL [Suspect]
     Route: 042
  2. HALOPERIDOL [Suspect]
  3. GABAPENTIN [Suspect]
  4. MORPHINE SULFATE [Suspect]
     Indication: PAIN

REACTIONS (3)
  - RHABDOMYOLYSIS [None]
  - STAPHYLOCOCCAL SEPSIS [None]
  - HYPOPHOSPHATAEMIA [None]
